FAERS Safety Report 8521831-2 (Version None)
Quarter: 2012Q3

REPORT INFORMATION
  Report Type: 
  Country: None (occurrence: None)
  Receive Date: 20120719
  Receipt Date: 20120418
  Transmission Date: 20120928
  Serious: Yes (Hospitalization)
  Sender: FDA-Public Use
  Company Number: US-BRISTOL-MYERS SQUIBB COMPANY-16534265

PATIENT
  Age: 89 Year
  Sex: Female
  Weight: 53 kg

DRUGS (1)
  1. YERVOY [Suspect]
     Indication: MALIGNANT MELANOMA STAGE IV
     Dosage: RECIEVED 2 DOSES

REACTIONS (1)
  - COLITIS [None]
